FAERS Safety Report 20637967 (Version 1)
Quarter: 2022Q1

REPORT INFORMATION
  Report Type: Spontaneous
  Country: US (occurrence: US)
  Receive Date: 20220325
  Receipt Date: 20220325
  Transmission Date: 20220423
  Serious: No
  Sender: FDA-Public Use
  Company Number: US-ALXN-A202201018

PATIENT
  Sex: Female

DRUGS (1)
  1. STRENSIQ [Suspect]
     Active Substance: ASFOTASE ALFA
     Indication: Hypophosphatasia
     Dosage: 2 MG/KG, 3 X PER WEEK (TTS)
     Route: 058
     Dates: start: 201810

REACTIONS (2)
  - Muscle spasms [Unknown]
  - Blood alkaline phosphatase decreased [Unknown]
